FAERS Safety Report 7785872-5 (Version None)
Quarter: 2011Q3

REPORT INFORMATION
  Report Type: 
  Country: None (occurrence: None)
  Receive Date: 20110929
  Receipt Date: 20110622
  Transmission Date: 20111222
  Serious: No
  Sender: FDA-Public Use
  Company Number: US-BAYER-2011-054857

PATIENT
  Sex: Male
  Weight: 102 kg

DRUGS (2)
  1. ALEVE (CAPLET) [Suspect]
     Dosage: UNK
     Route: 048
  2. FLECAINIDE ACETATE [Concomitant]

REACTIONS (2)
  - CARDIAC DISORDER [None]
  - HEART RATE IRREGULAR [None]
